FAERS Safety Report 8495776-0 (Version None)
Quarter: 2012Q2

REPORT INFORMATION
  Report Type: 
  Country: None (occurrence: None)
  Receive Date: 20120405
  Receipt Date: 20091117
  Transmission Date: 20120825
  Serious: Yes (Death)
  Sender: FDA-Public Use
  Company Number: PHEH2009US16526

PATIENT
  Age: 68 Year
  Sex: Female

DRUGS (6)
  1. PLAVIX [Concomitant]
  2. BENICAR HCT [Concomitant]
  3. PROTONIX ^PHARMACIA^ (PANTOPRZOLE) [Concomitant]
  4. NORVASC [Concomitant]
  5. RECLAST [Suspect]
     Dosage: INFUSION
     Dates: start: 20091116
  6. CRESTOR [Concomitant]

REACTIONS (4)
  - MALAISE [None]
  - PAIN [None]
  - ARTHRALGIA [None]
  - HEADACHE [None]
